FAERS Safety Report 23546627 (Version 4)
Quarter: 2024Q2

REPORT INFORMATION
  Report Type: Report from Study
  Country: CA (occurrence: CA)
  Receive Date: 20240221
  Receipt Date: 20240617
  Transmission Date: 20240715
  Serious: Yes (Other)
  Sender: FDA-Public Use
  Company Number: CA-BRISTOL-MYERS SQUIBB COMPANY-2024-021115

PATIENT
  Sex: Female

DRUGS (1)
  1. THALOMID [Suspect]
     Active Substance: THALIDOMIDE
     Indication: Product used for unknown indication
     Dosage: DOSE : 50 MG;  FREQ : 28C/28D; CYCLE: #23
     Route: 050
     Dates: start: 20220202, end: 20240111

REACTIONS (2)
  - Exposure via body fluid [Unknown]
  - Normal newborn [Unknown]

NARRATIVE: CASE EVENT DATE: 20231125
